FAERS Safety Report 9107779 (Version 1)
Quarter: 2013Q1

REPORT INFORMATION
  Report Type: Spontaneous
  Country: US (occurrence: US)
  Receive Date: 20130221
  Receipt Date: 20130221
  Transmission Date: 20140127
  Serious: No
  Sender: FDA-Public Use
  Company Number: US-PFIZER INC-2013063718

PATIENT
  Age: 69 Year
  Sex: Male
  Weight: 97.05 kg

DRUGS (3)
  1. SUTENT [Suspect]
     Indication: LUNG NEOPLASM
     Dosage: 50 MG, CYCLIC
     Dates: start: 20130108
  2. TOPROL [Concomitant]
     Indication: HYPERTENSION
     Dosage: 100 MG, 1X/DAY
  3. GLYBURIDE [Concomitant]
     Indication: DIABETES MELLITUS
     Dosage: 5 MG, 2X/DAY

REACTIONS (4)
  - Diarrhoea [Recovered/Resolved]
  - Nausea [Recovered/Resolved]
  - Fatigue [Not Recovered/Not Resolved]
  - Off label use [Unknown]
